FAERS Safety Report 5391464-8 (Version None)
Quarter: 2007Q3

REPORT INFORMATION
  Report Type: 
  Country: None (occurrence: None)
  Receive Date: 20070719
  Receipt Date: 20070712
  Transmission Date: 20080115
  Serious: Yes (Hospitalization)
  Sender: FDA-Public Use
  Company Number: US-ASTRAZENECA-2007UW15053

PATIENT
  Age: 55 Year
  Sex: Female
  Weight: 68.2 kg

DRUGS (6)
  1. NEXIUM [Suspect]
     Indication: BARRETT'S OESOPHAGUS
     Route: 048
     Dates: start: 20040701, end: 20070601
  2. NEXIUM [Suspect]
     Indication: GASTROOESOPHAGEAL REFLUX DISEASE
     Route: 048
     Dates: start: 20040701, end: 20070601
  3. ZOCOR [Concomitant]
     Indication: LIPIDS INCREASED
     Route: 048
  4. ASACOL [Concomitant]
     Indication: COLITIS ULCERATIVE
     Route: 048
  5. ATACAND [Concomitant]
     Indication: HYPERTENSION
     Route: 048
  6. ATENOLOL [Concomitant]
     Indication: HYPERTENSION

REACTIONS (1)
  - BLOOD CHROMOGRANIN A INCREASED [None]
